FAERS Safety Report 4490990-3 (Version None)
Quarter: 2004Q4

REPORT INFORMATION
  Report Type: 
  Country: None (occurrence: None)
  Receive Date: 20041027
  Receipt Date: 20041013
  Transmission Date: 20050328
  Serious: Yes (Hospitalization, Other)
  Sender: FDA-Public Use
  Company Number: 2004238798CL

PATIENT
  Age: 22 Year
  Sex: Female

DRUGS (12)
  1. NIFEDIPINE [Suspect]
     Indication: PULMONARY HYPERTENSION
     Dosage: 20 MG, SUBLNIGUAL
     Route: 060
  2. CARDIZEM [Suspect]
     Indication: PULMONARY HYPERTENSION
     Dosage: 60 MG, DAILY; 180 MG, DAILY
  3. SILDENAFIL (SILDENAFIL) [Suspect]
     Indication: PULMONARY HYPERTENSION
     Dosage: 50 MG, DAILY; 150 MG, DAILY
  4. R-GENE 10 [Suspect]
     Dosage: 3 G, DAILY
  5. NITROGLYCERIN [Suspect]
     Dosage: 0,05-0,5 UG/KG/MIN
  6. OXYGEN (OXYGEN) [Concomitant]
  7. OXYTOCIN 10 USP UNITS IN DEXTROSE 5% [Concomitant]
  8. BUPIVACAINE [Concomitant]
  9. LIDOCAINE [Concomitant]
  10. FENTANYL [Concomitant]
  11. MORPHINE [Concomitant]
  12. NITRIC OXIDE (NITRIC OXIDE) [Concomitant]

REACTIONS (17)
  - CAESAREAN SECTION [None]
  - CONDITION AGGRAVATED [None]
  - CYANOSIS [None]
  - DRUG EXPOSURE DURING PREGNANCY [None]
  - DRUG INEFFECTIVE [None]
  - DYSPNOEA EXERTIONAL [None]
  - FAILED INDUCTION OF LABOUR [None]
  - OEDEMA PERIPHERAL [None]
  - OXYGEN SATURATION DECREASED [None]
  - PLATELET COUNT DECREASED [None]
  - POST PROCEDURAL PAIN [None]
  - PRE-ECLAMPSIA [None]
  - PREGNANCY [None]
  - PULMONARY ARTERIAL PRESSURE INCREASED [None]
  - PULMONARY HYPERTENSION [None]
  - PULMONARY VASCULAR RESISTANCE ABNORMALITY [None]
  - RESPIRATORY RATE INCREASED [None]
